FAERS Safety Report 6554994-9 (Version None)
Quarter: 2010Q1

REPORT INFORMATION
  Report Type: 
  Country: None (occurrence: None)
  Receive Date: 20100126
  Receipt Date: 20100126
  Transmission Date: 20100710
  Serious: Yes (Other)
  Sender: FDA-Public Use
  Company Number: None

PATIENT
  Age: 62 Year
  Sex: Male
  Weight: 96.6162 kg

DRUGS (1)
  1. ZOCOR [Suspect]
     Indication: BLOOD CHOLESTEROL INCREASED
     Dosage: 1/2 TABLET DAILY PO
     Route: 048
     Dates: start: 20050615, end: 20091215

REACTIONS (10)
  - DEPRESSION [None]
  - DYSSTASIA [None]
  - GAIT DISTURBANCE [None]
  - JOINT SWELLING [None]
  - MENTAL DISORDER [None]
  - MUSCLE ATROPHY [None]
  - MYOPATHY [None]
  - PARAESTHESIA [None]
  - PIRIFORMIS SYNDROME [None]
  - SLEEP DISORDER [None]
